FAERS Safety Report 18072086 (Version 1)
Quarter: 2020Q3

REPORT INFORMATION
  Report Type: Spontaneous
  Country: US (occurrence: US)
  Receive Date: 20200725
  Receipt Date: 20200725
  Transmission Date: 20201103
  Serious: Yes (Hospitalization)
  Sender: FDA-Public Use
  Company Number: None

PATIENT
  Age: 80 Year
  Sex: Female
  Weight: 89.1 kg

DRUGS (14)
  1. FAMOTIDINE 20MG [Concomitant]
     Active Substance: FAMOTIDINE
  2. SYNTHROID [Concomitant]
     Active Substance: LEVOTHYROXINE SODIUM
  3. GABAPENTIN 300MG [Concomitant]
     Active Substance: GABAPENTIN
  4. UDENYCA [Suspect]
     Active Substance: PEGFILGRASTIM-CBQV
     Indication: AGRANULOCYTOSIS
     Dosage: ?          OTHER FREQUENCY:ONE EVERY 21 DAYS;?
     Route: 058
     Dates: start: 20200125, end: 20200725
  5. ZOFRAN 8MG [Concomitant]
  6. LIPITOR [Concomitant]
     Active Substance: ATORVASTATIN CALCIUM
  7. POTASSIUM 99MG [Concomitant]
  8. ALBUTEROL 2.5MG/3ML [Concomitant]
  9. PROZAC [Concomitant]
     Active Substance: FLUOXETINE HYDROCHLORIDE
  10. MULTIVITAMIN [Concomitant]
     Active Substance: VITAMINS
  11. AMITRIPTYLINE 10MG [Concomitant]
     Active Substance: AMITRIPTYLINE
  12. MONTELUKAST [Concomitant]
     Active Substance: MONTELUKAST SODIUM
  13. HYDROCHLOROTHIAZIDE 12.5MG [Concomitant]
     Active Substance: HYDROCHLOROTHIAZIDE
  14. ASPIRIN 81MG [Concomitant]
     Active Substance: ASPIRIN

REACTIONS (1)
  - Hospice care [None]

NARRATIVE: CASE EVENT DATE: 20200725
